FAERS Safety Report 6155323-5 (Version None)
Quarter: 2009Q2

REPORT INFORMATION
  Report Type: 
  Country: None (occurrence: None)
  Receive Date: 20090415
  Receipt Date: 20090408
  Transmission Date: 20091009
  Serious: Yes (Death, Other)
  Sender: FDA-Public Use
  Company Number: FR-ROXANE LABORATORIES, INC.-2009-RO-00359RO

PATIENT
  Age: 52 Year
  Sex: Male

DRUGS (12)
  1. CLARITHROMYCIN [Suspect]
     Indication: MYCOBACTERIAL INFECTION
  2. CEFOTAXIM [Suspect]
     Indication: EVIDENCE BASED TREATMENT
  3. METRONIDAZOLE [Suspect]
     Indication: EVIDENCE BASED TREATMENT
  4. GENTAMYCIN SULFATE [Suspect]
     Indication: EVIDENCE BASED TREATMENT
  5. RIFAMPICIN [Suspect]
     Indication: TUBERCULOSIS
  6. ISONIAZID [Suspect]
     Indication: TUBERCULOSIS
  7. RIFATER [Suspect]
     Indication: TUBERCULOSIS
  8. ETHAMBUTOL HCL [Suspect]
     Indication: TUBERCULOSIS
  9. VENLAFAXINE HCL [Concomitant]
     Dosage: 37.5MG
  10. OXAZEPAM [Concomitant]
     Dosage: 30MG
  11. DISULFIRAM [Concomitant]
     Dosage: 500MG
  12. ACAMPROSATE [Concomitant]
     Dosage: 1665MG

REACTIONS (6)
  - ANURIA [None]
  - BRONCHIAL OBSTRUCTION [None]
  - DEATH [None]
  - DYSPNOEA [None]
  - LIVER DISORDER [None]
  - RESPIRATORY GAS EXCHANGE DISORDER [None]
